FAERS Safety Report 4778131-6 (Version None)
Quarter: 2005Q3

REPORT INFORMATION
  Report Type: 
  Country: None (occurrence: None)
  Receive Date: 20050922
  Receipt Date: 20050906
  Transmission Date: 20060218
  Serious: Yes (Other)
  Sender: FDA-Public Use
  Company Number: 2005001740

PATIENT
  Sex: Female

DRUGS (1)
  1. ERLOTINIB HCL(TABLET)  (ERLOTINIB HCL) [Suspect]
     Indication: LUNG NEOPLASM MALIGNANT
     Dosage: 150 MG, ORAL
     Route: 048

REACTIONS (6)
  - BALANCE DISORDER [None]
  - CEREBRAL ATROPHY [None]
  - DEMENTIA [None]
  - INFECTION [None]
  - NEUROTOXICITY [None]
  - UNRESPONSIVE TO VERBAL STIMULI [None]
